FAERS Safety Report 5113684-X (Version None)
Quarter: 2006Q3

REPORT INFORMATION
  Report Type: 
  Country: None (occurrence: None)
  Receive Date: 20060925
  Receipt Date: 20060915
  Transmission Date: 20061208
  Serious: Yes (Life-Threatening, Hospitalization)
  Sender: FDA-Public Use
  Company Number: FR-AVENTIS-200613204FR

PATIENT
  Age: 59 Year
  Sex: Male

DRUGS (10)
  1. TAXOTERE [Suspect]
     Indication: SQUAMOUS CELL CARCINOMA
     Route: 042
     Dates: start: 20060612, end: 20060612
  2. CISPLATIN [Suspect]
     Indication: SQUAMOUS CELL CARCINOMA
     Route: 042
     Dates: start: 20060612, end: 20060612
  3. FLUOROURACIL [Suspect]
     Indication: SQUAMOUS CELL CARCINOMA
     Route: 042
     Dates: start: 20060622, end: 20060622
  4. TAHOR [Concomitant]
     Route: 048
  5. RANITIDINE [Concomitant]
  6. PREVISCAN [Concomitant]
     Route: 048
  7. TRANDATE [Concomitant]
     Route: 048
  8. AMLOR [Concomitant]
     Route: 048
  9. BUFLOMEDIL [Concomitant]
     Route: 048
  10. TRANXENE [Concomitant]
     Route: 048

REACTIONS (15)
  - ANOREXIA [None]
  - CANDIDIASIS [None]
  - CYANOSIS [None]
  - DIALYSIS [None]
  - DIARRHOEA [None]
  - FATIGUE [None]
  - FEBRILE NEUTROPENIA [None]
  - HYPERLACTACIDAEMIA [None]
  - HYPOKALAEMIA [None]
  - HYPOXIA [None]
  - PSEUDOMONAS INFECTION [None]
  - RENAL FAILURE ACUTE [None]
  - RESPIRATORY FAILURE [None]
  - SEPTIC SHOCK [None]
  - WHITE BLOOD CELL COUNT DECREASED [None]
